FAERS Safety Report 6301991-4 (Version None)
Quarter: 2009Q3

REPORT INFORMATION
  Report Type: 
  Country: None (occurrence: None)
  Receive Date: 20090807
  Receipt Date: 20090729
  Transmission Date: 20100115
  Serious: Yes (Other)
  Sender: FDA-Public Use
  Company Number: US-PFIZER INC-2009247559

PATIENT
  Age: 76 Year
  Sex: Female
  Weight: 58.957 kg

DRUGS (5)
  1. LIPITOR [Suspect]
     Indication: MYOCARDIAL INFARCTION
     Dosage: UNK
     Dates: start: 19990101, end: 20090601
  2. LIPITOR [Suspect]
     Indication: BLOOD CHOLESTEROL INCREASED
  3. TYLENOL (CAPLET) [Suspect]
     Indication: ARTHRALGIA
     Dosage: 1000 MG, 1-4 TIMES DAILY
     Route: 048
  4. WARFARIN [Concomitant]
     Dosage: UNK
     Dates: start: 20081201
  5. ACETYLSALICYLIC ACID [Concomitant]
     Indication: ANTICOAGULANT THERAPY
     Dosage: 325 MG, 1X/DAY
     Dates: start: 20090601

REACTIONS (8)
  - ARTHRALGIA [None]
  - FALL [None]
  - LIVER FUNCTION TEST ABNORMAL [None]
  - MIGRAINE [None]
  - RENAL FUNCTION TEST ABNORMAL [None]
  - THROMBOSIS [None]
  - URINARY TRACT INFECTION [None]
  - WHEELCHAIR USER [None]
